FAERS Safety Report 15157744 (Version 2)
Quarter: 2018Q3

REPORT INFORMATION
  Report Type: Spontaneous
  Country: US (occurrence: US)
  Receive Date: 20180718
  Receipt Date: 20180720
  Transmission Date: 20181010
  Serious: No
  Sender: FDA-Public Use
  Company Number: US-PFIZER INC-2018264866

PATIENT
  Age: 59 Year
  Sex: Female
  Weight: 95.25 kg

DRUGS (5)
  1. PRILOSEC [Concomitant]
     Active Substance: OMEPRAZOLE MAGNESIUM
     Indication: GASTROOESOPHAGEAL REFLUX DISEASE
     Dosage: UNK, 1X/DAY (IN THE MORNING)
  2. LYRICA [Suspect]
     Active Substance: PREGABALIN
     Dosage: 100 MG, 2X/DAY(TAKE ONE PILL IN THE MORNING AND ONE PILL AT NIGHT)
     Route: 048
     Dates: start: 20180709
  3. LYRICA [Suspect]
     Active Substance: PREGABALIN
     Indication: PAIN
     Dosage: 300 MG, UNK
     Dates: start: 2017
  4. LYRICA [Suspect]
     Active Substance: PREGABALIN
     Indication: BONE DISORDER
     Dosage: 150 MG, 2X/DAY(1 IN THE MORNING AND AT NIGHT)
     Route: 048
     Dates: start: 2017
  5. LYRICA [Suspect]
     Active Substance: PREGABALIN
     Dosage: 150 MG, UNK

REACTIONS (6)
  - Intentional product misuse [Unknown]
  - Drug dispensing error [Unknown]
  - Sciatica [Not Recovered/Not Resolved]
  - Weight increased [Not Recovered/Not Resolved]
  - Somnolence [Unknown]
  - Feeling abnormal [Unknown]

NARRATIVE: CASE EVENT DATE: 20180709
